FAERS Safety Report 15638320 (Version 1)
Quarter: 2018Q4

REPORT INFORMATION
  Report Type: Spontaneous
  Country: US (occurrence: US)
  Receive Date: 20181120
  Receipt Date: 20181120
  Transmission Date: 20190205
  Serious: No
  Sender: FDA-Public Use
  Company Number: US-JNJFOC-20180540598

PATIENT
  Sex: Male

DRUGS (11)
  1. ATENOLOL. [Concomitant]
     Active Substance: ATENOLOL
     Indication: HYPERTENSION
     Dosage: 81 MG, QD, INFUSION
  2. ALLOPURINOL. [Concomitant]
     Active Substance: ALLOPURINOL
  3. COLACE [Concomitant]
     Active Substance: DOCUSATE SODIUM
     Indication: CONSTIPATION
  4. CALCIUM [Concomitant]
     Active Substance: CALCIUM
     Indication: SUPPLEMENTATION THERAPY
  5. VITAMIN D [Concomitant]
     Active Substance: CHOLECALCIFEROL
     Indication: SUPPLEMENTATION THERAPY
  6. VENCLEXTA [Suspect]
     Active Substance: VENETOCLAX
     Indication: CHRONIC LYMPHOCYTIC LEUKAEMIA
     Dates: start: 201808
  7. ASPIRIN. [Concomitant]
     Active Substance: ASPIRIN
  8. IMBRUVICA [Suspect]
     Active Substance: IBRUTINIB
     Indication: PRODUCT USED FOR UNKNOWN INDICATION
     Route: 065
  9. ASCORBIC ACID. [Concomitant]
     Active Substance: ASCORBIC ACID
     Indication: SUPPLEMENTATION THERAPY
  10. IVIGLOB EX [Concomitant]
     Active Substance: HUMAN IMMUNOGLOBULIN G
  11. IMODIUM [Concomitant]
     Active Substance: LOPERAMIDE HYDROCHLORIDE
     Indication: DIARRHOEA

REACTIONS (3)
  - Skin discolouration [Not Recovered/Not Resolved]
  - Red blood cell count decreased [Unknown]
  - Rash macular [Unknown]
